FAERS Safety Report 12491931 (Version 1)
Quarter: 2016Q2

REPORT INFORMATION
  Report Type: Spontaneous
  Country: US (occurrence: None)
  Receive Date: 20160622
  Receipt Date: 20160622
  Transmission Date: 20160815
  Serious: No
  Sender: FDA-Public Use
  Company Number: None

PATIENT
  Age: 34 Year
  Sex: Female
  Weight: 122.93 kg

DRUGS (9)
  1. SAXENDA [Suspect]
     Active Substance: LIRAGLUTIDE
     Indication: WEIGHT DECREASED
     Route: 058
     Dates: start: 20160415, end: 20160606
  2. CYMBALTA [Concomitant]
     Active Substance: DULOXETINE HYDROCHLORIDE
  3. PROBIOTIC [Concomitant]
     Active Substance: PROBIOTICS NOS
  4. SAXENDA [Suspect]
     Active Substance: LIRAGLUTIDE
     Indication: POLYCYSTIC OVARIES
     Route: 058
     Dates: start: 20160415, end: 20160606
  5. IBUPROFEN. [Concomitant]
     Active Substance: IBUPROFEN
  6. NORCO [Concomitant]
     Active Substance: ACETAMINOPHEN\HYDROCODONE BITARTRATE
  7. SKELAXIN [Concomitant]
     Active Substance: METAXALONE
  8. GABAPENTIN. [Concomitant]
     Active Substance: GABAPENTIN
  9. MONONESSA [Concomitant]
     Active Substance: ETHINYL ESTRADIOL\NORGESTIMATE

REACTIONS (4)
  - Diarrhoea [None]
  - Vomiting [None]
  - Dehydration [None]
  - Nausea [None]

NARRATIVE: CASE EVENT DATE: 20160606
